FAERS Safety Report 6071545-6 (Version None)
Quarter: 2009Q1

REPORT INFORMATION
  Report Type: 
  Country: None (occurrence: None)
  Receive Date: 20090205
  Receipt Date: 20090205
  Transmission Date: 20090719
  Serious: No
  Sender: FDA-Public Use
  Company Number: None

PATIENT
  Sex: Female
  Weight: 60 kg

DRUGS (27)
  1. PAXIL [Suspect]
     Dosage: 20MG TABLET 20 MG QD ORAL
     Route: 048
     Dates: start: 20090106, end: 20090204
  2. AMITRIPTYLINE OINTMENT [Concomitant]
  3. COLACE (DOCUSATE SODIUM) [Concomitant]
  4. CRANBERRY [Concomitant]
  5. CYMBALTA [Concomitant]
  6. DIGOXIN [Concomitant]
  7. DILTIAZEM CD [Concomitant]
  8. FISH OIL CAPSULE [Concomitant]
  9. FLUROMETHOLONE [Concomitant]
  10. FUROSEMIDE [Concomitant]
  11. KCL SLOW RELEASE [Concomitant]
  12. LACTULOSE [Concomitant]
  13. MACROBID (NITROFURANTOIN SUSTAINED RELEASE) [Concomitant]
  14. METAMUCIL (PSYLLIUM) [Concomitant]
  15. MIACALCIN [Concomitant]
  16. NASONEX (MOMETASONE FURATE) [Concomitant]
  17. NEURONTIN [Concomitant]
  18. OS-CAL (CALCIUM CARBONATE) [Concomitant]
  19. OXYCONTIN (OXYCODONE SR) [Concomitant]
  20. PHILLIPS MAGNESIUM [Concomitant]
  21. VITAMIN-MINERAL COMPOUND TAB [Concomitant]
  22. PYRIDIUM (PHENAZOPYRIDINE HCL) [Concomitant]
  23. RANITIDINE HCL [Concomitant]
  24. SERAX [Concomitant]
  25. SUPER B COMPLEX [Concomitant]
  26. TYLENOL (CAPLET) [Concomitant]
  27. WARFARIN SODIUM [Concomitant]

REACTIONS (1)
  - FEELING JITTERY [None]
